FAERS Safety Report 19145123 (Version 3)
Quarter: 2022Q1

REPORT INFORMATION
  Report Type: Other
  Country: CA (occurrence: CA)
  Receive Date: 20210416
  Receipt Date: 20220118
  Transmission Date: 20220423
  Serious: Yes (Other)
  Sender: FDA-Public Use
  Company Number: CA-CELLTRION INC.-2021CA004724

PATIENT

DRUGS (18)
  1. RITUXIMAB [Suspect]
     Active Substance: RITUXIMAB
     Indication: Vasculitis
     Dosage: 822.0 MILLIGRAM
     Route: 041
  2. RITUXIMAB [Suspect]
     Active Substance: RITUXIMAB
     Indication: Granulomatosis with polyangiitis
     Dosage: 776 MILLIGRAM, 1 EVERY 1 WEEK
     Route: 041
  3. RITUXIMAB [Suspect]
     Active Substance: RITUXIMAB
     Dosage: 828 MILLIGRAM, 1 EVERY 1 WEEK
     Route: 041
  4. RITUXIMAB [Suspect]
     Active Substance: RITUXIMAB
     Dosage: 746 MILLIGRAM, 1 EVERY 1 WEEK
     Route: 041
  5. RITUXIMAB [Suspect]
     Active Substance: RITUXIMAB
     Dosage: 776 MILLIGRAM, 1 EVERY 1 WEEK
     Route: 041
  6. RITUXIMAB [Suspect]
     Active Substance: RITUXIMAB
     Dosage: 727.5 MILLIGRAM, 1 EVERY 1 WEEK
     Route: 041
  7. AMLODIPINE [Concomitant]
     Active Substance: AMLODIPINE BESYLATE
     Route: 065
  8. CYCLOPHOSPHAMIDE [Concomitant]
     Active Substance: CYCLOPHOSPHAMIDE
  9. DEPO-MEDROL [Concomitant]
     Active Substance: METHYLPREDNISOLONE ACETATE
     Dosage: 1 ML, 1 EVERY 1 DAYS
     Route: 065
  10. DEPO-MEDROL [Concomitant]
     Active Substance: METHYLPREDNISOLONE ACETATE
     Dosage: 80.0 MILLIGRAM
     Route: 065
  11. INSULIN NOS [Concomitant]
     Active Substance: INSULIN NOS
     Dosage: (DOSAGE FORM: GLOBULES ORAL)
  12. PANTOPRAZOLE [Concomitant]
     Active Substance: PANTOPRAZOLE
     Dosage: 40 MG, 1 EVERY 1 DAY
     Route: 065
  13. PREDNISONE [Concomitant]
     Active Substance: PREDNISONE
     Dosage: 0.5 MG, 1 EVERY 1 DAYS
     Route: 048
  14. PREDNISONE [Concomitant]
     Active Substance: PREDNISONE
     Dosage: 5 MG, 1 EVERY 1 DAYS (THERAPY DURATION: -14)
     Route: 048
  15. PREDNISONE [Concomitant]
     Active Substance: PREDNISONE
     Dosage: 1.0 MILLIGRAM, 1 EVERY 1 DAYS
     Route: 048
  16. CYCLOPHOSPHAMIDE [Concomitant]
     Active Substance: CYCLOPHOSPHAMIDE
  17. SEMAGLUTIDE [Concomitant]
     Active Substance: SEMAGLUTIDE
  18. SULFATRIM [Concomitant]
     Active Substance: SULFAMETHOXAZOLE\TRIMETHOPRIM
     Dosage: 800 MILLIGRAM, 1 EVERY 1 DAYS
     Route: 065

REACTIONS (22)
  - Blood alkaline phosphatase increased [Unknown]
  - Blood creatinine increased [Unknown]
  - Body surface area increased [Unknown]
  - C-reactive protein [Unknown]
  - Creatinine urine decreased [Unknown]
  - Glycosylated haemoglobin increased [Unknown]
  - Red cell distribution width increased [Unknown]
  - Total cholesterol/HDL ratio increased [Unknown]
  - Urine abnormality [Unknown]
  - Urine albumin/creatinine ratio increased [Unknown]
  - Urine leukocyte esterase positive [Unknown]
  - Weight increased [Unknown]
  - Bursitis [Unknown]
  - C-reactive protein increased [Unknown]
  - Blood glucose increased [Unknown]
  - Nasal ulcer [Unknown]
  - Osteoarthritis [Unknown]
  - Cough [Unknown]
  - Myalgia [Unknown]
  - Sinusitis [Unknown]
  - Pyrexia [Unknown]
  - Overdose [Unknown]
